FAERS Safety Report 5774706-6 (Version None)
Quarter: 2008Q2

REPORT INFORMATION
  Report Type: 
  Country: None (occurrence: None)
  Receive Date: 20080617
  Receipt Date: 20080610
  Transmission Date: 20081010
  Serious: Yes (Hospitalization, Other)
  Sender: FDA-Public Use
  Company Number: GB-BRISTOL-MYERS SQUIBB COMPANY-14205686

PATIENT
  Age: 50 Year
  Sex: Male

DRUGS (8)
  1. ARIPIPRAZOLE [Interacting]
     Indication: SCHIZOPHRENIA, PARANOID TYPE
     Dosage: 15MG/DAY AFTER 3 MONTHS.
  2. METFORMIN HCL [Suspect]
     Indication: DIABETES MELLITUS
     Dosage: PREVIOUSLY WAS 500 MG.
  3. GLICLAZIDE [Interacting]
     Indication: DIABETES MELLITUS
  4. RISPERIDONE [Interacting]
     Indication: SCHIZOPHRENIA, PARANOID TYPE
     Dosage: DURATION 3 MONTHS.
     Route: 048
  5. OLANZAPINE [Interacting]
     Indication: SCHIZOPHRENIA, PARANOID TYPE
  6. AMLODIPINE [Concomitant]
     Indication: HYPERTENSION
  7. SIMVASTATIN [Concomitant]
     Indication: HYPERCHOLESTEROLAEMIA
  8. PERINDOPRIL [Concomitant]
     Indication: HYPERTENSION

REACTIONS (8)
  - DRUG INTERACTION [None]
  - DRUG WITHDRAWAL SYNDROME [None]
  - HYPOGLYCAEMIA [None]
  - MENTAL DISORDER [None]
  - OVERWEIGHT [None]
  - TREATMENT NONCOMPLIANCE [None]
  - URINARY INCONTINENCE [None]
  - WEIGHT DECREASED [None]
